FAERS Safety Report 21746770 (Version 1)
Quarter: 2022Q4

REPORT INFORMATION
  Report Type: Spontaneous
  Country: US (occurrence: None)
  Receive Date: 20221216
  Receipt Date: 20221216
  Transmission Date: 20230113
  Serious: No
  Sender: FDA-Public Use
  Company Number: None

PATIENT
  Age: 74 Year
  Weight: 70.94 kg

DRUGS (12)
  1. ABIRATERONE ACETATE [Suspect]
     Active Substance: ABIRATERONE ACETATE
     Indication: Salivary gland cancer recurrent
     Dosage: FREQUENCY : DAILY;?
     Route: 048
     Dates: start: 20221122, end: 20221201
  2. ABIRATERONE [Concomitant]
     Active Substance: ABIRATERONE
  3. CRESTOR [Concomitant]
     Active Substance: ROSUVASTATIN CALCIUM
  4. IBUPROFEN [Concomitant]
     Active Substance: IBUPROFEN
  5. LEUPROLIDE [Concomitant]
     Active Substance: LEUPROLIDE
  6. LISINOPRIL [Concomitant]
     Active Substance: LISINOPRIL
  7. VITAMINS [Concomitant]
     Active Substance: VITAMINS
  8. PEPCID [Concomitant]
     Active Substance: FAMOTIDINE
  9. PREDNISONE [Concomitant]
     Active Substance: PREDNISONE
  10. SYNTHROID [Concomitant]
     Active Substance: LEVOTHYROXINE SODIUM
  11. HERBALS\TURMERIC [Concomitant]
     Active Substance: HERBALS\TURMERIC
  12. ZINC GLUCONATE [Concomitant]
     Active Substance: ZINC GLUCONATE

REACTIONS (1)
  - Therapy non-responder [None]
